FAERS Safety Report 4801584-1 (Version None)
Quarter: 2005Q4

REPORT INFORMATION
  Report Type: 
  Country: None (occurrence: None)
  Receive Date: 20051011
  Receipt Date: 20050929
  Transmission Date: 20060501
  Serious: Yes (Other)
  Sender: FDA-Public Use
  Company Number: S05-USA-00788-01

PATIENT
  Age: 41 Year
  Sex: Female

DRUGS (9)
  1. CELEXA [Suspect]
     Indication: ANXIETY
     Dosage: 10 MG QD PO
     Route: 048
     Dates: start: 20001201
  2. CELEXA [Suspect]
     Indication: DEPRESSION
     Dosage: 10 MG QD PO
     Route: 048
     Dates: start: 20001201
  3. CELEXA [Suspect]
     Indication: ANXIETY
     Dosage: 30 MG QD PO
     Route: 048
  4. CELEXA [Suspect]
     Indication: DEPRESSION
     Dosage: 30 MG QD PO
     Route: 048
  5. CELEXA [Suspect]
     Indication: ANXIETY
     Dosage: 7.5 MG QD PO
     Route: 048
     Dates: start: 20040101
  6. CELEXA [Suspect]
     Indication: DEPRESSION
     Dosage: 7.5 MG QD PO
     Route: 048
     Dates: start: 20040101
  7. CELEXA [Suspect]
     Indication: ANXIETY
     Dosage: 2.5 MG QD PO
     Route: 048
     Dates: end: 20050901
  8. CELEXA [Suspect]
     Indication: DEPRESSION
     Dosage: 2.5 MG QD PO
     Route: 048
     Dates: end: 20050901
  9. XANAX [Concomitant]

REACTIONS (5)
  - ABDOMINAL PAIN [None]
  - ARTERIOVENOUS MALFORMATION [None]
  - COLONIC ATONY [None]
  - CONSTIPATION [None]
  - HEADACHE [None]
